FAERS Safety Report 11009149 (Version 2)
Quarter: 2015Q2

REPORT INFORMATION
  Report Type: Spontaneous
  Country: PT (occurrence: None)
  Receive Date: 20150408
  Receipt Date: 20150528
  Transmission Date: 20150821
  Serious: Yes (Life-Threatening, Hospitalization)
  Sender: FDA-Public Use
  Company Number: FK201501526

PATIENT
  Age: 61 Year
  Sex: Female

DRUGS (1)
  1. OXALIPLATIN 5MG/ML CONCENTRATE FOR SOLUTION FOR INFUSION (OXALIPLATIN) (OXALIPLATIN) [Suspect]
     Active Substance: OXALIPLATIN
     Indication: PANCREATIC CARCINOMA
     Dosage: (NOT OTHERWISE SPECIFIED)
     Route: 042
     Dates: start: 20150310, end: 20150310

REACTIONS (2)
  - Stridor [None]
  - Dyspnoea [None]

NARRATIVE: CASE EVENT DATE: 20150310
